FAERS Safety Report 10032549 (Version 2)
Quarter: 2014Q2

REPORT INFORMATION
  Report Type: Spontaneous
  Country: SK (occurrence: SK)
  Receive Date: 20140324
  Receipt Date: 20140401
  Transmission Date: 20141212
  Serious: Yes (Other)
  Sender: FDA-Public Use
  Company Number: SK-BAYER-2014-042465

PATIENT
  Age: 77 Year
  Sex: Female

DRUGS (2)
  1. ASPIRIN [Suspect]
  2. OMEPRAZOLE [Suspect]
     Dosage: UNK

REACTIONS (5)
  - Colitis microscopic [None]
  - Diarrhoea [None]
  - Abnormal loss of weight [None]
  - Gastritis erosive [None]
  - Candida test positive [None]
